FAERS Safety Report 8957849 (Version 2)
Quarter: 2013Q1

REPORT INFORMATION
  Report Type: Spontaneous
  Country: US (occurrence: US)
  Receive Date: 20121211
  Receipt Date: 20130111
  Transmission Date: 20140127
  Serious: No
  Sender: FDA-Public Use
  Company Number: US-BIOGENIDEC-2012BI056314

PATIENT
  Age: 58 Year
  Sex: Female

DRUGS (1)
  1. TYSABRI [Suspect]
     Indication: MULTIPLE SCLEROSIS
     Route: 042
     Dates: start: 20120717

REACTIONS (12)
  - Arrhythmia [Not Recovered/Not Resolved]
  - Fall [Recovered/Resolved]
  - White blood cell count increased [Not Recovered/Not Resolved]
  - Memory impairment [Unknown]
  - Nervousness [Unknown]
  - Pyrexia [Recovered/Resolved]
  - Fatigue [Not Recovered/Not Resolved]
  - Dizziness [Not Recovered/Not Resolved]
  - Malaise [Unknown]
  - Hypotension [Unknown]
  - Infusion related reaction [Unknown]
  - Infection [Unknown]
